FAERS Safety Report 8886806 (Version 1)
Quarter: 2012Q4

REPORT INFORMATION
  Report Type: 
  Country: GB (occurrence: GB)
  Receive Date: 20121105
  Receipt Date: 20121105
  Transmission Date: 20130627
  Serious: Yes (Other)
  Sender: FDA-Public Use
  Company Number: GB-B.I. PHARMACEUTICALS,INC./RIDGEFIELD-2012-UK-01672UK

PATIENT
  Age: 77 Year
  Sex: Female
  Weight: 47.63 kg

DRUGS (5)
  1. SPIRIVA [Suspect]
     Dates: start: 20120809
  2. ASPIRIN [Concomitant]
     Dates: start: 20120709
  3. DIPYRIDAMOLE [Concomitant]
     Dates: start: 20120709
  4. LOSARTAN [Concomitant]
     Dates: start: 20120709
  5. SIMVASTATIN [Concomitant]
     Dates: start: 20120709

REACTIONS (2)
  - Oropharyngeal pain [Recovered/Resolved]
  - Glossodynia [Recovered/Resolved]
